FAERS Safety Report 10613991 (Version 3)
Quarter: 2015Q2

REPORT INFORMATION
  Report Type: Spontaneous
  Country: US (occurrence: US)
  Receive Date: 20141128
  Receipt Date: 20150402
  Transmission Date: 20150821
  Serious: Yes (Life-Threatening, Other)
  Sender: FDA-Public Use
  Company Number: US-BRISTOL-MYERS SQUIBB COMPANY-21587837

PATIENT

DRUGS (6)
  1. LAMOTRIGINE. [Suspect]
     Active Substance: LAMOTRIGINE
  2. INSULIN [Concomitant]
     Active Substance: INSULIN NOS
     Indication: TYPE 2 DIABETES MELLITUS
  3. CLONAZEPAM. [Suspect]
     Active Substance: CLONAZEPAM
  4. HALOPERIDOL. [Suspect]
     Active Substance: HALOPERIDOL
  5. LEVOTHYROXINE [Concomitant]
     Active Substance: LEVOTHYROXINE
     Indication: HYPOTHYROIDISM
  6. ARIPIPRAZOLE. [Suspect]
     Active Substance: ARIPIPRAZOLE
     Indication: PRODUCT USED FOR UNKNOWN INDICATION
     Dosage: 10 MG BID  CONTINUED
     Route: 065

REACTIONS (5)
  - Hyperbilirubinaemia neonatal [Unknown]
  - Haemangioma [Unknown]
  - Poor feeding infant [Unknown]
  - Umbilical hernia [Unknown]
  - Foetal exposure during pregnancy [Unknown]
